FAERS Safety Report 8598505-5 (Version None)
Quarter: 2012Q3

REPORT INFORMATION
  Report Type: 
  Country: None (occurrence: None)
  Receive Date: 20120816
  Receipt Date: 20120801
  Transmission Date: 20120928
  Serious: Yes (Hospitalization)
  Sender: FDA-Public Use
  Company Number: IT-ROCHE-1096445

PATIENT
  Sex: Female

DRUGS (7)
  1. HERCEPTIN [Suspect]
     Indication: BREAST CANCER
     Route: 041
     Dates: start: 20110302, end: 20110302
  2. FLUVOXAMINE MALEATE [Concomitant]
     Indication: DEPRESSION
  3. LORAZEPAM [Concomitant]
  4. ABILIFY [Concomitant]
     Indication: DEPRESSION
     Route: 048
  5. CHLORPROMAZINE HCL [Concomitant]
     Indication: DEPRESSION
  6. NOZINAN (UNITED KINGDOM) [Concomitant]
     Indication: DEPRESSION
  7. TAMOXIFEN CITRATE [Concomitant]
     Route: 048

REACTIONS (6)
  - SOPOR [None]
  - MYDRIASIS [None]
  - EPISTAXIS [None]
  - SEPTIC SHOCK [None]
  - PULMONARY EMBOLISM [None]
  - MEGACOLON [None]
